FAERS Safety Report 14632836 (Version 1)
Quarter: 2018Q1

REPORT INFORMATION
  Report Type: Spontaneous
  Country: FR (occurrence: FR)
  Receive Date: 20180313
  Receipt Date: 20180313
  Transmission Date: 20180509
  Serious: Yes (Hospitalization)
  Sender: FDA-Public Use
  Company Number: FR-TEVA-2018-FR-867858

PATIENT
  Age: 90 Year
  Sex: Female
  Weight: 54 kg

DRUGS (2)
  1. CEFAZOLINE [Interacting]
     Active Substance: CEFAZOLIN SODIUM
     Indication: STAPHYLOCOCCAL INFECTION
     Route: 042
  2. FUROSEMIDE. [Suspect]
     Active Substance: FUROSEMIDE
     Route: 048

REACTIONS (2)
  - Renal failure [Recovering/Resolving]
  - Drug interaction [Unknown]
